FAERS Safety Report 7325716-9 (Version None)
Quarter: 2011Q1

REPORT INFORMATION
  Report Type: 
  Country: None (occurrence: None)
  Receive Date: 20110302
  Receipt Date: 20091214
  Transmission Date: 20110831
  Serious: No
  Sender: FDA-Public Use
  Company Number: US-BAYER-200943734NA

PATIENT
  Sex: Female

DRUGS (1)
  1. MIRENA [Suspect]
     Indication: PRODUCT USED FOR UNKNOWN INDICATION
     Dosage: 20 MCG/24HR, CONT
     Route: 015

REACTIONS (6)
  - MEDICAL DEVICE COMPLICATION [None]
  - SHORTENED CERVIX [None]
  - CERVIX DISORDER [None]
  - POST PROCEDURAL HAEMORRHAGE [None]
  - FEELING ABNORMAL [None]
  - COITAL BLEEDING [None]
